FAERS Safety Report 7672520-8 (Version None)
Quarter: 2011Q3

REPORT INFORMATION
  Report Type: 
  Country: None (occurrence: None)
  Receive Date: 20110809
  Receipt Date: 20110803
  Transmission Date: 20111222
  Serious: Yes (Hospitalization)
  Sender: FDA-Public Use
  Company Number: US-VERTEX PHARMACEUTICALS INC.-AE-2011-000709

PATIENT
  Sex: Female

DRUGS (2)
  1. INCIVEK [Suspect]
     Indication: HEPATITIS C
     Route: 048
     Dates: start: 20110801
  2. RIBAVIRIN [Concomitant]
     Indication: HEPATITIS
     Route: 048
     Dates: start: 20110801

REACTIONS (3)
  - DEHYDRATION [None]
  - DRUG ADMINISTRATION ERROR [None]
  - PLATELET COUNT DECREASED [None]
